FAERS Safety Report 13192373 (Version 2)
Quarter: 2017Q4

REPORT INFORMATION
  Report Type: Spontaneous
  Country: JP (occurrence: JP)
  Receive Date: 20170207
  Receipt Date: 20171017
  Transmission Date: 20180320
  Serious: Yes (Hospitalization)
  Sender: FDA-Public Use
  Company Number: PHJP2017JP004031

PATIENT

DRUGS (1)
  1. SANDOSTATINA LAR IM INJECTION [Suspect]
     Active Substance: OCTREOTIDE ACETATE
     Indication: PRODUCT USED FOR UNKNOWN INDICATION
     Dosage: 20 MG, UNK
     Route: 030

REACTIONS (1)
  - Injury [Unknown]

NARRATIVE: CASE EVENT DATE: 201702
